FAERS Safety Report 7595190-6 (Version None)
Quarter: 2011Q3

REPORT INFORMATION
  Report Type: 
  Country: None (occurrence: None)
  Receive Date: 20110707
  Receipt Date: 20110630
  Transmission Date: 20111222
  Serious: Yes (Other)
  Sender: FDA-Public Use
  Company Number: US-PFIZER INC-2011150010

PATIENT
  Sex: Female

DRUGS (1)
  1. LIPITOR [Suspect]
     Indication: BLOOD CHOLESTEROL ABNORMAL
     Dosage: UNK
     Dates: start: 20021101

REACTIONS (4)
  - PAIN IN EXTREMITY [None]
  - JOINT SWELLING [None]
  - OEDEMA PERIPHERAL [None]
  - ARTHRALGIA [None]
